FAERS Safety Report 10042742 (Version 1)
Quarter: 2014Q1

REPORT INFORMATION
  Report Type: Spontaneous
  Country: US (occurrence: US)
  Receive Date: 20140327
  Receipt Date: 20140327
  Transmission Date: 20141002
  Serious: Yes (Other)
  Sender: FDA-Public Use
  Company Number: CHPA2014US004483

PATIENT
  Age: 63 Year
  Sex: Female

DRUGS (2)
  1. PREVACID 24HR 15MG [Suspect]
     Indication: GASTROOESOPHAGEAL REFLUX DISEASE
     Dosage: UNK
     Route: 048
  2. PREVACID 24HR 15MG [Suspect]
     Indication: OFF LABEL USE

REACTIONS (4)
  - Pneumonia aspiration [Unknown]
  - Nasopharyngitis [Recovering/Resolving]
  - Inappropriate schedule of drug administration [Unknown]
  - Incorrect drug administration duration [Unknown]
